FAERS Safety Report 25479421 (Version 1)
Quarter: 2025Q2

REPORT INFORMATION
  Report Type: Spontaneous
  Country: CN (occurrence: CN)
  Receive Date: 20250625
  Receipt Date: 20250625
  Transmission Date: 20250717
  Serious: Yes (Other)
  Sender: MERCK SHARP & DOHME LLC
  Company Number: CN-009507513-2298853

PATIENT
  Age: 79 Year
  Sex: Male

DRUGS (4)
  1. CILASTATIN SODIUM\IMIPENEM [Suspect]
     Active Substance: CILASTATIN SODIUM\IMIPENEM
     Indication: Abdominal infection
     Dosage: 500 MG, BID
     Route: 041
     Dates: start: 20250606, end: 20250615
  2. CILASTATIN SODIUM\IMIPENEM [Suspect]
     Active Substance: CILASTATIN SODIUM\IMIPENEM
     Indication: Abdominal infection
     Dosage: 500 MG, QID
     Route: 041
     Dates: start: 20250615, end: 20250617
  3. Ceftazidime Avibactam Sodium [Concomitant]
     Indication: Pneumonia
     Route: 041
     Dates: start: 20250613, end: 20250617
  4. Ceftazidime Avibactam Sodium [Concomitant]
     Indication: Pneumonia
     Route: 041
     Dates: start: 20250617, end: 20250618

REACTIONS (1)
  - Epilepsy [Recovering/Resolving]

NARRATIVE: CASE EVENT DATE: 20250617
